FAERS Safety Report 7711459-6 (Version None)
Quarter: 2011Q3

REPORT INFORMATION
  Report Type: 
  Country: None (occurrence: None)
  Receive Date: 20110823
  Receipt Date: 20110815
  Transmission Date: 20111222
  Serious: Yes (Other)
  Sender: FDA-Public Use
  Company Number: 2011SP021272

PATIENT
  Sex: Female

DRUGS (2)
  1. PEGATRON (PEGYLATED INTERFERON ALFA-2B W/RIBAVIRIN) [Suspect]
     Indication: HEPATITIS C
     Dates: start: 20110411
  2. OLANZAPINE [Concomitant]

REACTIONS (15)
  - MEMORY IMPAIRMENT [None]
  - DEVICE MALFUNCTION [None]
  - BLOOD PRESSURE DECREASED [None]
  - HYPERSOMNIA [None]
  - INFLUENZA LIKE ILLNESS [None]
  - REFUSAL OF TREATMENT BY PATIENT [None]
  - SYNCOPE [None]
  - CONFUSIONAL STATE [None]
  - SLEEP DISORDER [None]
  - NIGHTMARE [None]
  - COGNITIVE DISORDER [None]
  - ANAEMIA [None]
  - ABDOMINAL PAIN [None]
  - AFFECTIVE DISORDER [None]
  - MUSCLE SPASMS [None]
